FAERS Safety Report 16864115 (Version 1)
Quarter: 2019Q3

REPORT INFORMATION
  Report Type: Spontaneous
  Country: DK (occurrence: DK)
  Receive Date: 20190927
  Receipt Date: 20190927
  Transmission Date: 20191005
  Serious: Yes (Hospitalization)
  Sender: FDA-Public Use
  Company Number: PHHY2019DK219564

PATIENT
  Age: 32 Year
  Sex: Female

DRUGS (10)
  1. METHYLPHENIDATE. [Concomitant]
     Active Substance: METHYLPHENIDATE
     Indication: ATTENTION DEFICIT/HYPERACTIVITY DISORDER
     Dosage: DOSIS: VARIERENDE. STYRKE: VARIERENDE.
     Route: 048
  2. OLANZAPINE. [Suspect]
     Active Substance: OLANZAPINE
     Indication: ANXIETY
     Dosage: DOSIS: START 15 MG. SAT NED TIL 5MGX2 DEN 20APR2016. DEN 19MAJ2016 TOG HUN 50 MG DGL
     Route: 048
     Dates: start: 20160413, end: 20160519
  3. QUETIAPINE. [Suspect]
     Active Substance: QUETIAPINE
     Indication: OBSESSIVE-COMPULSIVE DISORDER
     Dosage: I PERIODEN MAR-MAJ2016 TAGET OP MOD 5-700 MG DAGLIGT
     Route: 048
     Dates: start: 20151214, end: 20160519
  4. ALPRAZOLAM. [Suspect]
     Active Substance: ALPRAZOLAM
     Indication: SEDATION
     Dosage: TAGET OP MOD 6-8 MG DAGLIGT I PERIODEN MAR-MAJ 2016
     Route: 048
  5. ZOPICLONE [Suspect]
     Active Substance: ZOPICLONE
     Indication: INSOMNIA
     Dosage: DOSIS: 5 MG DAGLIGT
     Route: 048
  6. SERTRALINE [Concomitant]
     Active Substance: SERTRALINE HYDROCHLORIDE
     Indication: OBSESSIVE-COMPULSIVE DISORDER
     Dosage: DOSIS: VARIERENDE. STYRKE: VARIERENDE.
     Route: 048
  7. RISPERIDONE. [Suspect]
     Active Substance: RISPERIDONE
     Indication: ANXIETY
     Dosage: 0.5 MG, QD
     Route: 048
     Dates: start: 20151208, end: 20160519
  8. ORPHENADRINE [Suspect]
     Active Substance: ORPHENADRINE
     Indication: PRODUCT USED FOR UNKNOWN INDICATION
     Dosage: 50 MG, QD
     Route: 048
     Dates: start: 20160404
  9. CHLORPROTHIXENE [Suspect]
     Active Substance: CHLORPROTHIXENE
     Indication: SEDATION
     Dosage: 30 MG, QD
     Route: 048
     Dates: start: 20151019, end: 20160519
  10. ZOLPIDEM [Suspect]
     Active Substance: ZOLPIDEM TARTRATE
     Indication: INSOMNIA
     Dosage: I PERIODEN MAR-MAJ2016 TAGET OP MOD 200-220 MG DAGLIGT
     Route: 048

REACTIONS (16)
  - Muscle spasms [Recovered/Resolved]
  - Skin wound [Recovered/Resolved]
  - Weight decreased [Unknown]
  - Communication disorder [Recovered/Resolved]
  - Nausea [Recovered/Resolved]
  - Dry mouth [Recovered/Resolved]
  - Restlessness [Recovered/Resolved]
  - Rash [Recovered/Resolved]
  - Mania [Recovered/Resolved]
  - Obsessive-compulsive disorder [Not Recovered/Not Resolved]
  - Respiratory disorder [Recovered/Resolved]
  - Constipation [Recovered/Resolved]
  - Memory impairment [Recovered/Resolved]
  - Intentional product misuse [Recovered/Resolved]
  - Decreased appetite [Recovered/Resolved]
  - Anxiety [Not Recovered/Not Resolved]

NARRATIVE: CASE EVENT DATE: 201603
